FAERS Safety Report 18260063 (Version 1)
Quarter: 2020Q3

REPORT INFORMATION
  Report Type: Spontaneous
  Country: FR (occurrence: FR)
  Receive Date: 20200913
  Receipt Date: 20200913
  Transmission Date: 20201103
  Serious: Yes (Other)
  Sender: FDA-Public Use
  Company Number: FR-NOVITIUMPHARMA-2020FRNVP00052

PATIENT

DRUGS (2)
  1. SIROLIMUS. [Suspect]
     Active Substance: SIROLIMUS
     Dosage: 0.02 AND 0.15MG PER KG
  2. SIROLIMUS. [Suspect]
     Active Substance: SIROLIMUS
     Indication: LYMPHATIC DISORDER
     Dosage: 0.1 MG PER KG PER DAY
     Route: 048

REACTIONS (5)
  - Off label use [Unknown]
  - Pyelonephritis [Recovered/Resolved]
  - Dyslipidaemia [Recovered/Resolved]
  - Cellulitis [Recovered/Resolved]
  - Enterobacter pneumonia [Recovered/Resolved]
